FAERS Safety Report 4889924-9 (Version None)
Quarter: 2006Q1

REPORT INFORMATION
  Report Type: 
  Country: None (occurrence: None)
  Receive Date: 20060123
  Receipt Date: 20060123
  Transmission Date: 20060701
  Serious: Yes (Hospitalization)
  Sender: FDA-Public Use
  Company Number: None

PATIENT
  Age: 38 Year
  Sex: Female
  Weight: 59.4212 kg

DRUGS (1)
  1. OMNICEF [Suspect]
     Indication: PHARYNGOLARYNGEAL PAIN
     Dosage: 600MG  DAILY  PO
     Route: 048
     Dates: start: 20060113, end: 20060116

REACTIONS (1)
  - ERYTHEMA MULTIFORME [None]
